FAERS Safety Report 24696312 (Version 2)
Quarter: 2024Q4

REPORT INFORMATION
  Report Type: Spontaneous
  Country: CA (occurrence: CA)
  Receive Date: 20241204
  Receipt Date: 20241211
  Transmission Date: 20250115
  Serious: Yes (Hospitalization, Other)
  Sender: TEVA
  Company Number: CA-TEVA-VS-3271219

PATIENT
  Sex: Female

DRUGS (10)
  1. DOXORUBICIN [Suspect]
     Active Substance: DOXORUBICIN
     Indication: Breast cancer female
     Dosage: DOSAGE FORM:SOLUTION INTRAVENOUS
     Route: 042
  2. DOXORUBICIN [Suspect]
     Active Substance: DOXORUBICIN
     Indication: Breast cancer female
     Dosage: DOSAGE FORM:NOT SPECIFIED,DOXORUBICIN?INJECTION, BP
     Route: 042
  3. PEGFILGRASTIM [Suspect]
     Active Substance: PEGFILGRASTIM
     Indication: Neutropenia
     Route: 058
  4. PEGFILGRASTIM [Suspect]
     Active Substance: PEGFILGRASTIM
     Indication: Neutropenia
     Route: 065
  5. DEXAMETHASONE [Concomitant]
     Active Substance: DEXAMETHASONE
     Indication: Vomiting
     Dosage: DOSAGE FORM: NOT SPECIFIED
     Route: 048
  6. PEGFILGRASTIM [Suspect]
     Active Substance: PEGFILGRASTIM
     Indication: Prophylaxis
     Dosage: DOSAGE FORM: SOLUTION SUBCUTANEOUS,SINGLE-USE PREFILLED SYRINGE
     Route: 058
  7. PEGFILGRASTIM [Suspect]
     Active Substance: PEGFILGRASTIM
     Indication: Prophylaxis
     Dosage: SINGLE-USE PREFILLED SYRINGE
     Route: 065
  8. NETUPITANT/PALONOSETRON HYDROCHLORIDE [Concomitant]
     Indication: Vomiting
     Route: 048
  9. NETUPITANT/PALONOSETRON HYDROCHLORIDE [Concomitant]
     Indication: Vomiting
     Route: 065
  10. CYCLOPHOSPHAMIDE [Suspect]
     Active Substance: CYCLOPHOSPHAMIDE
     Indication: Breast cancer female
     Dosage: DOSAGE FORM: NOT SPECIFIED
     Route: 042

REACTIONS (2)
  - Febrile neutropenia [Recovered/Resolved]
  - Treatment failure [Recovered/Resolved]
